FAERS Safety Report 7321708-4 (Version None)
Quarter: 2011Q1

REPORT INFORMATION
  Report Type: 
  Country: None (occurrence: None)
  Receive Date: 20110228
  Receipt Date: 20100804
  Transmission Date: 20110831
  Serious: Yes (Other)
  Sender: FDA-Public Use
  Company Number: US-PFIZER INC-2010027594

PATIENT
  Sex: Male

DRUGS (4)
  1. WELLBUTRIN SR [Concomitant]
     Dosage: UNK
  2. GEODON [Suspect]
     Indication: ANXIETY
     Dosage: 60 MG, 2 EVERY MORNING
     Dates: start: 20070530, end: 20100101
  3. LEXAPRO [Concomitant]
     Dosage: UNK
  4. SEROQUEL [Concomitant]
     Dosage: UNK

REACTIONS (1)
  - DYSKINESIA [None]
